FAERS Safety Report 4711679-9 (Version None)
Quarter: 2005Q3

REPORT INFORMATION
  Report Type: 
  Country: None (occurrence: None)
  Receive Date: 20050708
  Receipt Date: 20050627
  Transmission Date: 20060218
  Serious: Yes (Other)
  Sender: FDA-Public Use
  Company Number: MYVW-PR-0506S-0028

PATIENT
  Age: 43 Year
  Sex: Male
  Weight: 90.7194 kg

DRUGS (8)
  1. MYOVIEW (TECHNETIUM TC99M TETROFOSMIN) [Suspect]
     Indication: CORONARY ARTERY DISEASE
     Dosage: 419.58 MBQ, SINGLE DOSE, I.V.
     Route: 042
     Dates: start: 20050609, end: 20050609
  2. TECHNETIUM (TC99M) GENERATOR (MANF. UNKNOWN) [Concomitant]
  3. ASPIRIN [Concomitant]
  4. PANTOPRAZOLE (PROTONIX) [Concomitant]
  5. PLAVIX [Concomitant]
  6. LIPITOR [Concomitant]
  7. ALTACE [Concomitant]
  8. ONDANSETRON HCL [Concomitant]

REACTIONS (7)
  - ASTHENIA [None]
  - FATIGUE [None]
  - GRAND MAL CONVULSION [None]
  - HYPERHIDROSIS [None]
  - NAUSEA [None]
  - SYNCOPE [None]
  - VOMITING [None]
